FAERS Safety Report 7639526-6 (Version None)
Quarter: 2011Q3

REPORT INFORMATION
  Report Type: 
  Country: None (occurrence: None)
  Receive Date: 20110727
  Receipt Date: 20110720
  Transmission Date: 20111222
  Serious: Yes (Other)
  Sender: FDA-Public Use
  Company Number: JP-GLAXOSMITHKLINE-B0722321A

PATIENT
  Sex: Female

DRUGS (3)
  1. URSO 250 [Concomitant]
     Dosage: 300MG PER DAY
     Route: 048
  2. VALTREX [Suspect]
     Indication: HERPES ZOSTER
     Dosage: 3000MG PER DAY
     Route: 048
     Dates: start: 20090526, end: 20090530
  3. FAMOTIDINE [Concomitant]
     Dosage: 40MG PER DAY
     Route: 048

REACTIONS (5)
  - DECREASED APPETITE [None]
  - VOMITING [None]
  - MALAISE [None]
  - RENAL FAILURE ACUTE [None]
  - NAUSEA [None]
